FAERS Safety Report 25232207 (Version 2)
Quarter: 2025Q2

REPORT INFORMATION
  Report Type: Spontaneous
  Country: US (occurrence: US)
  Receive Date: 20250423
  Receipt Date: 20250423
  Transmission Date: 20250717
  Serious: Yes (Other)
  Sender: AMGEN
  Company Number: US-AMGEN-USASP2025074033

PATIENT
  Age: 67 Year
  Sex: Female

DRUGS (4)
  1. PREDNISONE [Suspect]
     Active Substance: PREDNISONE
     Indication: Retinal occlusive vasculitis
     Dosage: 60 MILLIGRAM, QD
     Route: 048
  2. PEGCETACOPLAN [Concomitant]
     Active Substance: PEGCETACOPLAN
     Indication: Age-related macular degeneration
     Route: 065
  3. PREDNISOLONE ACETATE [Concomitant]
     Active Substance: PREDNISOLONE ACETATE
     Dosage: HOURLY IN THE LEFT EYE
     Route: 061
  4. DEXAMETHASONE [Concomitant]
     Active Substance: DEXAMETHASONE

REACTIONS (8)
  - Anterior segment neovascularisation [Unknown]
  - Retinal vascular disorder [Unknown]
  - Choroiditis [Unknown]
  - Retinal haemorrhage [Unknown]
  - Cataract [Unknown]
  - Anterior segment ischaemia [Unknown]
  - Necrotising retinitis [Unknown]
  - Drug ineffective [Unknown]
